FAERS Safety Report 25749734 (Version 3)
Quarter: 2025Q4

REPORT INFORMATION
  Report Type: Spontaneous
  Country: US (occurrence: US)
  Receive Date: 20250902
  Receipt Date: 20251007
  Transmission Date: 20260118
  Serious: No
  Sender: ALEXION PHARMACEUTICALS
  Company Number: US-AstraZeneca-CH-00940904AP

PATIENT
  Sex: Male

DRUGS (1)
  1. BUDESONIDE\FORMOTEROL [Suspect]
     Active Substance: BUDESONIDE\FORMOTEROL
     Indication: Asthma
     Dosage: 160 MICROGRAM
     Route: 065

REACTIONS (5)
  - Cough [Unknown]
  - Condition aggravated [Unknown]
  - Drug ineffective [Unknown]
  - Product cleaning inadequate [Unknown]
  - Product dose omission issue [Unknown]
